FAERS Safety Report 6042357-4 (Version None)
Quarter: 2009Q1

REPORT INFORMATION
  Report Type: 
  Country: None (occurrence: None)
  Receive Date: 20090116
  Receipt Date: 20090105
  Transmission Date: 20090719
  Serious: Yes (Other)
  Sender: FDA-Public Use
  Company Number: US-PFIZER INC-2009151612

PATIENT
  Sex: Female
  Weight: 70.295 kg

DRUGS (8)
  1. GEODON [Suspect]
     Indication: BIPOLAR DISORDER
     Dates: start: 20081201
  2. GEODON [Suspect]
     Indication: POST-TRAUMATIC STRESS DISORDER
  3. TEGRETOL [Concomitant]
  4. ATIVAN [Concomitant]
     Dosage: UNK
  5. LITHIUM CARBONATE [Concomitant]
  6. SEROQUEL [Concomitant]
  7. ADVAIR DISKUS 100/50 [Concomitant]
  8. LIPITOR [Concomitant]

REACTIONS (10)
  - BILIARY DILATATION [None]
  - CHOLELITHIASIS [None]
  - DYSPNOEA [None]
  - FATIGUE [None]
  - FOOD AVERSION [None]
  - FRUSTRATION [None]
  - GASTROOESOPHAGEAL REFLUX DISEASE [None]
  - LIVER FUNCTION TEST ABNORMAL [None]
  - MALAISE [None]
  - WEIGHT FLUCTUATION [None]
